FAERS Safety Report 6406313-6 (Version None)
Quarter: 2009Q4

REPORT INFORMATION
  Report Type: 
  Country: None (occurrence: None)
  Receive Date: 20091008
  Receipt Date: 20090928
  Transmission Date: 20100525
  Serious: Yes (Other)
  Sender: FDA-Public Use
  Company Number: THYM-1001219

PATIENT
  Age: 20 Year
  Sex: Male
  Weight: 55 kg

DRUGS (4)
  1. THYMOGLOBULIN [Suspect]
     Indication: ACUTE GRAFT VERSUS HOST DISEASE
     Dosage: 1 MG/KG, QD, INTRAVENOUS; 1 MG/KG, QD, INTRAVENOUS; 1 MG/KG, QD, INTRAVENOUS
     Route: 042
     Dates: start: 20090817, end: 20090817
  2. THYMOGLOBULIN [Suspect]
     Indication: ACUTE GRAFT VERSUS HOST DISEASE
     Dosage: 1 MG/KG, QD, INTRAVENOUS; 1 MG/KG, QD, INTRAVENOUS; 1 MG/KG, QD, INTRAVENOUS
     Route: 042
     Dates: start: 20090825, end: 20090825
  3. THYMOGLOBULIN [Suspect]
     Indication: ACUTE GRAFT VERSUS HOST DISEASE
     Dosage: 1 MG/KG, QD, INTRAVENOUS; 1 MG/KG, QD, INTRAVENOUS; 1 MG/KG, QD, INTRAVENOUS
     Route: 042
     Dates: start: 20090909, end: 20090909
  4. THYMOGLOBULIN [Suspect]
     Indication: ACUTE GRAFT VERSUS HOST DISEASE
     Dosage: 1 MG/KG, QD, INTRAVENOUS; 1 MG/KG, QD, INTRAVENOUS; 1 MG/KG, QD, INTRAVENOUS
     Route: 042
     Dates: start: 20090925, end: 20090925

REACTIONS (1)
  - GASTROINTESTINAL HAEMORRHAGE [None]
